FAERS Safety Report 20949400 (Version 1)
Quarter: 2022Q2

REPORT INFORMATION
  Report Type: Spontaneous
  Country: US (occurrence: US)
  Receive Date: 20220613
  Receipt Date: 20220613
  Transmission Date: 20220720
  Serious: No
  Sender: FDA-Public Use
  Company Number: US-NOVARTISTESTPH-NVSC2022US134825

PATIENT
  Sex: Male

DRUGS (1)
  1. HYCAMTIN [Suspect]
     Active Substance: TOPOTECAN HYDROCHLORIDE
     Indication: Lung carcinoma cell type unspecified recurrent
     Dosage: 1 MG (TAKE 5 CAPS BY MOUTH DAILY FOR 5 DAYS OF 21 DAY CYCLE W/ OR W/O FOOD, TAKE WHOLE DONT CHEW, CR
     Route: 048
     Dates: start: 20220513

REACTIONS (4)
  - Arthralgia [Unknown]
  - Epistaxis [Unknown]
  - Alopecia [Unknown]
  - Diarrhoea [Unknown]
